FAERS Safety Report 22614482 (Version 1)
Quarter: 2023Q2

REPORT INFORMATION
  Report Type: Spontaneous
  Country: US (occurrence: US)
  Receive Date: 20230619
  Receipt Date: 20230619
  Transmission Date: 20230721
  Serious: No
  Sender: FDA-Public Use
  Company Number: US-Accord-262086

PATIENT
  Sex: Female
  Weight: 45.36 kg

DRUGS (3)
  1. QUETIAPINE FUMARATE [Suspect]
     Active Substance: QUETIAPINE FUMARATE
     Indication: Anxiety
     Dosage: 150 MG 6 MONTHS AGO, 50 MG DAILY AT NIGHT
     Route: 048
     Dates: start: 202111
  2. VALIUM [Concomitant]
     Active Substance: DIAZEPAM
  3. ATIVAN [Concomitant]
     Active Substance: LORAZEPAM

REACTIONS (5)
  - Flushing [Unknown]
  - Headache [Unknown]
  - Dizziness [Not Recovered/Not Resolved]
  - Restlessness [Not Recovered/Not Resolved]
  - Irritability [Not Recovered/Not Resolved]
